FAERS Safety Report 6181864-0 (Version None)
Quarter: 2009Q2

REPORT INFORMATION
  Report Type: 
  Country: None (occurrence: None)
  Receive Date: 20090504
  Receipt Date: 20090420
  Transmission Date: 20091009
  Serious: Yes (Hospitalization)
  Sender: FDA-Public Use
  Company Number: 230043K09IRL

PATIENT
  Sex: Male

DRUGS (2)
  1. REBIF [Suspect]
     Dosage: SUBCUTANEOUS; 8.8 MCG, SUBCUTANEOUS
     Route: 058
     Dates: start: 20090309
  2. COPAXONE [Concomitant]

REACTIONS (4)
  - ASTHENIA [None]
  - FALL [None]
  - MULTIPLE SCLEROSIS RELAPSE [None]
  - WEIGHT BEARING DIFFICULTY [None]
